FAERS Safety Report 12834342 (Version 1)
Quarter: 2016Q4

REPORT INFORMATION
  Report Type: Spontaneous
  Country: US (occurrence: US)
  Receive Date: 20161010
  Receipt Date: 20161010
  Transmission Date: 20170207
  Serious: No
  Sender: FDA-Public Use
  Company Number: US-PERRIGO-15US009875

PATIENT
  Age: 53 Year
  Sex: Female
  Weight: 100.68 kg

DRUGS (3)
  1. NICOTINE POLACRILEX [Suspect]
     Active Substance: NICOTINE
     Indication: SMOKING CESSATION THERAPY
     Dosage: 4 MG, BID
     Route: 002
     Dates: start: 20150921, end: 20150921
  2. BUPROPION. [Concomitant]
     Active Substance: BUPROPION
     Indication: DEPRESSION
     Dosage: UNK
     Route: 065
     Dates: start: 20150915
  3. BUPROPION. [Concomitant]
     Active Substance: BUPROPION
     Indication: SMOKING CESSATION THERAPY

REACTIONS (2)
  - Thirst [Recovered/Resolved]
  - Increased upper airway secretion [Recovered/Resolved]

NARRATIVE: CASE EVENT DATE: 20150921
